FAERS Safety Report 10159635 (Version 2)
Quarter: 2015Q3

REPORT INFORMATION
  Report Type: Spontaneous
  Country: US (occurrence: US)
  Receive Date: 20140508
  Receipt Date: 20150814
  Transmission Date: 20151125
  Serious: No
  Sender: FDA-Public Use
  Company Number: US-GLAXOSMITHKLINE-A1018168A

PATIENT
  Sex: Female
  Weight: 86.5 kg

DRUGS (12)
  1. SODIUM BICARBONATE. [Concomitant]
     Active Substance: SODIUM BICARBONATE
  2. ASPIRIN. [Concomitant]
     Active Substance: ASPIRIN
  3. HERCEPTIN [Concomitant]
     Active Substance: TRASTUZUMAB
  4. DIOVAN [Concomitant]
     Active Substance: VALSARTAN
  5. NEXIUM [Concomitant]
     Active Substance: ESOMEPRAZOLE MAGNESIUM
  6. CLARITIN [Concomitant]
     Active Substance: LORATADINE
  7. TYKERB [Suspect]
     Active Substance: LAPATINIB DITOSYLATE
     Indication: BREAST CANCER
     Dosage: THREE 250MG TABLETS (750 MG) DAILY
     Route: 048
  8. TYKERB [Suspect]
     Active Substance: LAPATINIB DITOSYLATE
     Dosage: 1250 MG, QD
     Route: 048
     Dates: start: 20140707
  9. RESTORIL [Concomitant]
     Active Substance: TEMAZEPAM
  10. DILTIAZEM [Concomitant]
     Active Substance: DILTIAZEM
  11. ZYRTEC [Concomitant]
     Active Substance: CETIRIZINE HYDROCHLORIDE
  12. VITAMIN B12 [Concomitant]
     Active Substance: CYANOCOBALAMIN

REACTIONS (3)
  - Therapy cessation [Unknown]
  - Diarrhoea [Unknown]
  - Surgery [Unknown]
